FAERS Safety Report 19148516 (Version 4)
Quarter: 2021Q4

REPORT INFORMATION
  Report Type: Report from Study
  Country: DE (occurrence: DE)
  Receive Date: 20210416
  Receipt Date: 20211026
  Transmission Date: 20220303
  Serious: Yes (Life-Threatening, Hospitalization, Other)
  Sender: FDA-Public Use
  Company Number: DE-BRISTOL-MYERS SQUIBB COMPANY-BMS-2021-015367

PATIENT
  Age: 60 Year
  Sex: Male
  Weight: 74 kg

DRUGS (28)
  1. PLACEBO [Suspect]
     Active Substance: UNSPECIFIED INGREDIENT
     Indication: Bladder cancer
     Dosage: 1 TAB
     Route: 065
     Dates: start: 20200907
  2. NIVOLUMAB [Suspect]
     Active Substance: NIVOLUMAB
     Indication: Bladder cancer
     Dosage: 360 MILLIGRAM
     Route: 042
     Dates: start: 20200907
  3. CISPLATIN [Suspect]
     Active Substance: CISPLATIN
     Indication: Bladder cancer
     Dosage: 130.9 MILLIGRAM
     Route: 065
     Dates: start: 20200907
  4. GEMCITABINE HYDROCHLORIDE [Suspect]
     Active Substance: GEMCITABINE HYDROCHLORIDE
     Indication: Bladder cancer
     Dosage: 1870 MILLIGRAM
     Route: 065
     Dates: start: 20200907
  5. LINEZOLID [Concomitant]
     Active Substance: LINEZOLID
     Indication: Product used for unknown indication
     Dosage: 1200 MILLIGRAM
     Route: 042
     Dates: start: 20210125, end: 20210204
  6. LINEZOLID [Concomitant]
     Active Substance: LINEZOLID
     Dosage: 1200 MILLIGRAM
     Route: 048
     Dates: start: 20210127, end: 20210205
  7. LINEZOLID [Concomitant]
     Active Substance: LINEZOLID
     Dosage: 1200 MILLIGRAM
     Route: 042
     Dates: start: 20210213, end: 20210215
  8. SULFAMETHOXAZOLE\TRIMETHOPRIM [Concomitant]
     Active Substance: SULFAMETHOXAZOLE\TRIMETHOPRIM
     Indication: Product used for unknown indication
     Dosage: 2880 MILLIGRAM
     Route: 048
     Dates: start: 20210204, end: 20210205
  9. SULFAMETHOXAZOLE\TRIMETHOPRIM [Concomitant]
     Active Substance: SULFAMETHOXAZOLE\TRIMETHOPRIM
     Dosage: 1920 MILLIGRAM
     Route: 048
     Dates: start: 20210128, end: 20210204
  10. FLUCONAZOLE [Concomitant]
     Active Substance: FLUCONAZOLE
     Indication: Product used for unknown indication
     Dosage: 800 MILLIGRAM
     Route: 048
     Dates: start: 20210127, end: 20210205
  11. FLUCONAZOLE [Concomitant]
     Active Substance: FLUCONAZOLE
     Dosage: 800 MILLIGRAM
     Route: 042
     Dates: start: 20210213, end: 20210215
  12. AMOXICILLIN\CLAVULANIC ACID [Concomitant]
     Active Substance: AMOXICILLIN\CLAVULANIC ACID
     Indication: Product used for unknown indication
     Dosage: 3 GRAM
     Route: 048
     Dates: start: 20210126, end: 20210205
  13. METOPROLOL [Concomitant]
     Active Substance: METOPROLOL
     Indication: Product used for unknown indication
     Dosage: 23.75 MILLIGRAM
     Route: 048
     Dates: start: 20100401
  14. JONOSTERIL [CALCIUM ACETATE;MAGNESIUM ACETATE TETRAHYDRATE;POTASSIUM A [Concomitant]
     Indication: Product used for unknown indication
     Dosage: 1 DOSAGE FORM = 1000 UNIT NOS
     Route: 042
     Dates: start: 20210213, end: 20210215
  15. ENOXAPARIN SODIUM [Concomitant]
     Active Substance: ENOXAPARIN SODIUM
     Indication: Product used for unknown indication
     Dosage: 1 DOSAGE FORM = 0.4 UNIT NOS
     Route: 058
     Dates: start: 20210123, end: 20210205
  16. ENOXAPARIN SODIUM [Concomitant]
     Active Substance: ENOXAPARIN SODIUM
     Dosage: 1 DOSAGE FORM = 0.4 UNIT NOS
     Route: 058
     Dates: start: 20210213, end: 20210220
  17. SULFAMETHOXAZOLE\TRIMETHOPRIM [Concomitant]
     Active Substance: SULFAMETHOXAZOLE\TRIMETHOPRIM
     Indication: Product used for unknown indication
     Dosage: 1 DOSAGE FORM = 3 UNIT NOS
     Route: 048
     Dates: start: 20210213, end: 20210219
  18. MAGALDRATE [Concomitant]
     Active Substance: MAGALDRATE
     Indication: Product used for unknown indication
     Dosage: 1600 MILLIGRAM
     Route: 048
     Dates: start: 20210213, end: 20210224
  19. MOVICOL [Concomitant]
     Active Substance: POLYETHYLENE GLYCOL 3350\POTASSIUM CHLORIDE\SODIUM BICARBONATE\SODIUM CHLORIDE
     Indication: Product used for unknown indication
     Dosage: 1 DOSAGE FORM = 2 UNIT NOS
     Route: 048
     Dates: start: 20210107, end: 20210205
  20. MOVICOL [Concomitant]
     Active Substance: POLYETHYLENE GLYCOL 3350\POTASSIUM CHLORIDE\SODIUM BICARBONATE\SODIUM CHLORIDE
     Dosage: 1 DOSAGE FORM = 2 UNIT NOS
     Route: 048
     Dates: start: 20210213, end: 20210215
  21. FRESUBIN [CAFFEINE;CARBOHYDRATES NOS;FATS NOS;FIBRE, DIETARY;MINERALS [Concomitant]
     Indication: Product used for unknown indication
     Dosage: 1 DOSAGE FORM = 600 UNIT NOS
     Route: 048
     Dates: start: 20210114, end: 20210224
  22. MILAX [Concomitant]
     Indication: Product used for unknown indication
     Dosage: 1 DOSAGE FORM = 1 UNIT NOS
     Route: 054
     Dates: start: 20210129, end: 20210203
  23. RIOPAN MAGEN GEL [Concomitant]
     Indication: Product used for unknown indication
     Dosage: 1 DOSAGE FORM = 1 UNIT NOS
     Route: 048
     Dates: start: 20210122, end: 20210205
  24. AMPICILLIN SODIUM\SULBACTAM SODIUM [Concomitant]
     Active Substance: AMPICILLIN SODIUM\SULBACTAM SODIUM
     Indication: Product used for unknown indication
     Dosage: 9 GRAM
     Route: 042
     Dates: start: 20210125, end: 20210204
  25. LAXANS [BISACODYL] [Concomitant]
     Indication: Product used for unknown indication
     Dosage: 10 MILLIGRAM
     Route: 054
     Dates: start: 20210129, end: 20210203
  26. PANTOPRAZOLE [Concomitant]
     Active Substance: PANTOPRAZOLE
     Indication: Product used for unknown indication
     Dosage: 40 MILLIGRAM
     Route: 048
     Dates: start: 20210105
  27. CASPOFUNGIN [Concomitant]
     Active Substance: CASPOFUNGIN
     Indication: Product used for unknown indication
     Dosage: 70 MILLIGRAM
     Route: 042
     Dates: start: 20210125, end: 20210204
  28. INFLUVAC TETRA [Concomitant]
     Active Substance: INFLUENZA VIRUS VACCINE QUADRIVALENT TYPE A+B
     Indication: Prophylaxis
     Dosage: UNK
     Route: 030
     Dates: start: 20191014

REACTIONS (2)
  - Acute kidney injury [Recovered/Resolved]
  - Hyponatraemia [Recovering/Resolving]

NARRATIVE: CASE EVENT DATE: 20210213
